FAERS Safety Report 9286236 (Version 2)
Quarter: 2013Q2

REPORT INFORMATION
  Report Type: Spontaneous
  Country: JP (occurrence: JP)
  Receive Date: 20130513
  Receipt Date: 20130619
  Transmission Date: 20140414
  Serious: Yes (Other)
  Sender: FDA-Public Use
  Company Number: PHHY2013JP046914

PATIENT
  Sex: Female

DRUGS (8)
  1. TEGRETOL [Suspect]
     Dosage: UNK UKN, UNK
     Route: 048
  2. HALCION [Concomitant]
     Route: 048
  3. CERCINE [Concomitant]
     Route: 048
  4. ROHYPNOL [Concomitant]
     Route: 048
  5. DOGMATYL [Concomitant]
     Route: 048
  6. LEVOTOMIN [Concomitant]
     Route: 048
  7. VEGETAMIN B [Concomitant]
     Route: 048
  8. SEROQUEL [Concomitant]
     Route: 048

REACTIONS (3)
  - Road traffic accident [Recovered/Resolved]
  - Altered state of consciousness [Recovered/Resolved]
  - Amnesia [Unknown]
